FAERS Safety Report 14202660 (Version 8)
Quarter: 2021Q4

REPORT INFORMATION
  Report Type: Spontaneous
  Country: GB (occurrence: GB)
  Receive Date: 20171118
  Receipt Date: 20211222
  Transmission Date: 20220303
  Serious: Yes (Other)
  Sender: FDA-Public Use
  Company Number: GB-NOVPHSZ-PHHY2017GB160255

PATIENT
  Age: 17 Year
  Sex: Female

DRUGS (39)
  1. DOCETAXEL [Suspect]
     Active Substance: DOCETAXEL
     Indication: Desmoplastic small round cell tumour
     Dosage: THREE LINES OF CHEMOTHERAPY ()
     Route: 065
  2. DOCETAXEL [Suspect]
     Active Substance: DOCETAXEL
     Indication: Malignant neoplasm progression
  3. GEMCITABINE [Suspect]
     Active Substance: GEMCITABINE
     Indication: Desmoplastic small round cell tumour
     Dosage: 3 LINES OF CHEMOTHERAPY ()
     Route: 065
  4. IRINOTECAN [Suspect]
     Active Substance: IRINOTECAN
     Indication: Desmoplastic small round cell tumour
     Dosage: UNK
     Route: 065
  5. TEMOZOLOMIDE [Suspect]
     Active Substance: TEMOZOLOMIDE
     Indication: Desmoplastic small round cell tumour
     Dosage: 3 LINES OF CHEMOTHERAPY ()
     Route: 065
  6. TEMOZOLOMIDE [Suspect]
     Active Substance: TEMOZOLOMIDE
     Indication: Malignant neoplasm progression
  7. TOPOTECAN [Suspect]
     Active Substance: TOPOTECAN HYDROCHLORIDE
     Indication: Desmoplastic small round cell tumour
     Dosage: 3 LINES OF CHEMOTHERAPY ()
     Route: 065
  8. TOPOTECAN [Suspect]
     Active Substance: TOPOTECAN HYDROCHLORIDE
     Indication: Malignant neoplasm progression
  9. VINCRISTINE [Suspect]
     Active Substance: VINCRISTINE
     Indication: Desmoplastic small round cell tumour
     Dosage: 1 UNIT, FIVE CYCLES
     Route: 065
  10. VINCRISTINE [Suspect]
     Active Substance: VINCRISTINE
     Indication: Malignant neoplasm progression
     Dosage: 1 UNIT,4 CYCLES ; CYCLICAL ()
     Route: 042
  11. VINCRISTINE [Suspect]
     Active Substance: VINCRISTINE
     Dosage: THREE LINES OF CHEMOTHERAPY ()
     Route: 042
  12. VINCRISTINE [Suspect]
     Active Substance: VINCRISTINE
     Dosage: 1 UNIT,IVA 5 CYCLES ; CYCLICAL ()
     Route: 042
  13. VINCRISTINE [Suspect]
     Active Substance: VINCRISTINE
     Dosage: 1 IU, THREE LINES OF CHEMOTHERAPY
     Route: 065
  14. VINCRISTINE [Suspect]
     Active Substance: VINCRISTINE
     Dosage: 1 CYCLICAL, THREE LINES OF CHEMOTHERAPY
     Route: 065
  15. VINCRISTINE [Suspect]
     Active Substance: VINCRISTINE
     Dosage: 1 IU CYCLICAL
     Route: 042
  16. ONDANSETRON [Suspect]
     Active Substance: ONDANSETRON
     Indication: Product used for unknown indication
     Dosage: ()
     Route: 065
  17. VINORELBINE [Suspect]
     Active Substance: VINORELBINE TARTRATE
     Indication: Desmoplastic small round cell tumour
     Dosage: UNK
     Route: 065
  18. VINORELBINE [Suspect]
     Active Substance: VINORELBINE TARTRATE
     Dosage: 1 UNIT, 4 CYCLES ; CYCLICAL ()
     Route: 065
  19. VINORELBINE [Suspect]
     Active Substance: VINORELBINE TARTRATE
     Dosage: 1 UNIT,4 CYCLES, MAINTENANCE THERAPY ; CYCLICAL ()
     Route: 065
  20. IRINOTECAN [Suspect]
     Active Substance: IRINOTECAN
     Indication: Desmoplastic small round cell tumour
     Dosage: ()
     Route: 065
  21. IRINOTECAN [Suspect]
     Active Substance: IRINOTECAN
     Indication: Malignant neoplasm progression
     Dosage: 3 LINES OF CHEMOTHERAPY ()
     Route: 065
  22. IRINOTECAN [Suspect]
     Active Substance: IRINOTECAN
     Indication: Off label use
  23. ACTINOMYCIN D [Suspect]
     Active Substance: DACTINOMYCIN
     Indication: Desmoplastic small round cell tumour
     Dosage: 4 CYCLES ; CYCLICAL ()
     Route: 065
  24. ACTINOMYCIN D [Suspect]
     Active Substance: DACTINOMYCIN
     Dosage: IVA 5 CYCLES ; CYCLICAL ()
     Route: 042
  25. DOXORUBICIN [Suspect]
     Active Substance: DOXORUBICIN
     Indication: Desmoplastic small round cell tumour
     Dosage: 1 UNIT,4 CYCLES ; CYCLICAL ()
     Route: 065
  26. CYCLOPHOSPHAMIDE [Suspect]
     Active Substance: CYCLOPHOSPHAMIDE
     Indication: Malignant neoplasm progression
     Dosage: 3 LINES OF CHEMOTHERAPY ()
     Route: 065
  27. CYCLOPHOSPHAMIDE [Suspect]
     Active Substance: CYCLOPHOSPHAMIDE
     Indication: Desmoplastic small round cell tumour
     Dosage: 3 LINES OF CHEMOTHERAPY ()
     Route: 065
  28. CYCLOPHOSPHAMIDE [Suspect]
     Active Substance: CYCLOPHOSPHAMIDE
     Dosage: 4 CYCLES, MAINTENANCE THERAPY ; CYCLICAL ()
     Route: 065
  29. ONDANSETRON [Concomitant]
     Active Substance: ONDANSETRON
     Indication: Product used for unknown indication
     Dosage: 8 MG, PRN
     Route: 065
  30. ACTINOMYCIN D [Concomitant]
     Active Substance: DACTINOMYCIN
     Indication: Desmoplastic small round cell tumour
     Dosage: ()
     Route: 065
  31. IFOSFAMIDE [Suspect]
     Active Substance: IFOSFAMIDE
     Indication: Desmoplastic small round cell tumour
     Dosage: 1 UNIT, FIVE CYCLES ; CYCLICAL
     Route: 065
  32. IFOSFAMIDE [Suspect]
     Active Substance: IFOSFAMIDE
     Dosage: 4 CYCLES ()
     Route: 065
  33. IFOSFAMIDE [Suspect]
     Active Substance: IFOSFAMIDE
     Dosage: 1 UNIT,IVA 5 CYCLES ; CYCLICAL ()
     Route: 065
  34. IFOSFAMIDE [Suspect]
     Active Substance: IFOSFAMIDE
     Dosage: 4 CYCLES ; CYCLICAL ()
     Route: 065
  35. MELATONIN [Concomitant]
     Active Substance: MELATONIN
     Indication: Product used for unknown indication
     Dosage: 6 MG, QD
     Route: 065
  36. CYCLIZINE [Concomitant]
     Active Substance: CYCLIZINE
     Indication: Product used for unknown indication
     Dosage: 50 MG, PRN
     Route: 065
  37. CYCLIZINE [Concomitant]
     Active Substance: CYCLIZINE
     Dosage: 50 MG, AS REQ^D
     Route: 065
  38. SULFAMETHOXAZOLE\TRIMETHOPRIM [Concomitant]
     Active Substance: SULFAMETHOXAZOLE\TRIMETHOPRIM
     Indication: Product used for unknown indication
     Dosage: 480 MG, BID, SATURDAY AND SUNDAY
     Route: 065
  39. PAZOPANIB [Concomitant]
     Active Substance: PAZOPANIB
     Indication: Product used for unknown indication
     Dosage: ()
     Route: 065

REACTIONS (9)
  - Ascites [Recovering/Resolving]
  - Therapeutic product effect incomplete [Unknown]
  - Malignant neoplasm progression [Unknown]
  - Desmoplastic small round cell tumour [Unknown]
  - Off label use [Recovered/Resolved]
  - Metastases to peritoneum [Unknown]
  - Metastases to liver [Unknown]
  - Drug ineffective [Unknown]
  - Metastases to lymph nodes [Unknown]

NARRATIVE: CASE EVENT DATE: 20170801
